FAERS Safety Report 9978383 (Version 1)
Quarter: 2014Q1

REPORT INFORMATION
  Report Type: Report from Study
  Country: US (occurrence: US)
  Receive Date: 20140306
  Receipt Date: 20140306
  Transmission Date: 20141002
  Serious: No
  Sender: FDA-Public Use
  Company Number: US-ABBVIE-13P-163-1172803-00

PATIENT
  Age: 45 Year
  Sex: Female
  Weight: 50.85 kg

DRUGS (3)
  1. HUMIRA [Suspect]
     Indication: CROHN^S DISEASE
     Dosage: LOADING DOSE
     Route: 058
     Dates: start: 20131116, end: 20131116
  2. HUMIRA [Suspect]
     Dosage: LOADING DOSE
     Route: 058
     Dates: start: 20131117, end: 20131117
  3. MICROGESTIN FE [Concomitant]
     Indication: CONTRACEPTION

REACTIONS (2)
  - Urticaria [Recovered/Resolved]
  - Rash generalised [Recovered/Resolved]
